FAERS Safety Report 22620220 (Version 1)
Quarter: 2023Q2

REPORT INFORMATION
  Report Type: Spontaneous
  Country: FR (occurrence: FR)
  Receive Date: 20230620
  Receipt Date: 20230620
  Transmission Date: 20230722
  Serious: Yes (Hospitalization, Other)
  Sender: FDA-Public Use
  Company Number: FR-SA-SAC20230530000761

PATIENT
  Age: 3 Year
  Sex: Male
  Weight: 15.2 kg

DRUGS (10)
  1. METHOTREXATE [Suspect]
     Active Substance: METHOTREXATE
     Indication: Acute lymphocytic leukaemia recurrent
     Dosage: 36 DOSAGE FORM, 36 MG/DL
     Route: 065
     Dates: start: 20221207, end: 20230126
  2. ETOPOSIDE [Suspect]
     Active Substance: ETOPOSIDE
     Indication: Product used for unknown indication
     Dosage: UNK
     Route: 042
     Dates: start: 20230318
  3. METHYLPREDNISOLONE [Suspect]
     Active Substance: METHYLPREDNISOLONE
     Indication: Lymphocytic leukaemia
     Dosage: 14.6 MILLIGRAM
     Route: 042
     Dates: start: 20221209, end: 20230210
  4. CYCLOSPORINE [Suspect]
     Active Substance: CYCLOSPORINE
     Indication: Prophylaxis against graft versus host disease
     Dosage: 20 MILLIGRAM
     Route: 042
     Dates: start: 20230320, end: 20230418
  5. THYMOGLOBULINE [Suspect]
     Active Substance: LAPINE T-LYMPHOCYTE IMMUNE GLOBULIN
     Indication: Product used for unknown indication
     Dosage: 38.5 MILLIGRAM
     Route: 042
     Dates: start: 20230318, end: 20230320
  6. INOTUZUMAB OZOGAMICIN [Suspect]
     Active Substance: INOTUZUMAB OZOGAMICIN
     Indication: Acute lymphocytic leukaemia recurrent
     Dosage: 0.32 MILLIGRAM
     Route: 042
     Dates: start: 20221209, end: 20230210
  7. LINEZOLID [Concomitant]
     Active Substance: LINEZOLID
     Indication: Febrile bone marrow aplasia
     Dosage: UNK
     Route: 042
     Dates: start: 20230330, end: 20230413
  8. VANCOMYCIN [Concomitant]
     Active Substance: VANCOMYCIN
     Indication: Febrile bone marrow aplasia
     Dosage: UNK
     Route: 042
     Dates: start: 20230322, end: 20230330
  9. DEFIBROTIDE [Concomitant]
     Active Substance: DEFIBROTIDE (BOVINE)
     Indication: Venoocclusive liver disease
     Dosage: 6.25 MG/KG X4
     Route: 042
     Dates: start: 20230401
  10. PIPERACILLIN SODIUM\TAZOBACTAM SODIUM [Concomitant]
     Active Substance: PIPERACILLIN SODIUM\TAZOBACTAM SODIUM
     Indication: Febrile bone marrow aplasia
     Dosage: UNK
     Route: 042
     Dates: start: 20230319, end: 20230417

REACTIONS (14)
  - Eyelid oedema [Recovered/Resolved]
  - Blood potassium decreased [Unknown]
  - Ascites [Unknown]
  - Abdominal distension [Unknown]
  - Venoocclusive liver disease [Recovered/Resolved]
  - Hepatomegaly [Recovered/Resolved]
  - Weight increased [Unknown]
  - Renal failure [Unknown]
  - Blood bilirubin increased [Unknown]
  - Blood albumin decreased [Unknown]
  - Oedema [Recovered/Resolved]
  - Thrombocytopenia [Unknown]
  - BK virus infection [Unknown]
  - Varicella zoster virus infection [Unknown]

NARRATIVE: CASE EVENT DATE: 20230101
